FAERS Safety Report 9305932 (Version 1)
Quarter: 2013Q2

REPORT INFORMATION
  Report Type: Spontaneous
  Country: BR (occurrence: BR)
  Receive Date: 20130523
  Receipt Date: 20130523
  Transmission Date: 20140414
  Serious: Yes (Hospitalization, Other)
  Sender: FDA-Public Use
  Company Number: BR-PFIZER INC-2013158489

PATIENT
  Age: 56 Year
  Sex: Male

DRUGS (5)
  1. ATENOLOL [Suspect]
     Indication: MYOCARDIAL INFARCTION
     Dosage: 25 MG, 2X/DAY
     Route: 065
     Dates: start: 2002
  2. ATENOLOL [Suspect]
     Indication: HYPERTENSION
  3. ATACAND [Suspect]
     Indication: MYOCARDIAL INFARCTION
     Dosage: 8 MG, 1X/DAY
     Route: 048
     Dates: start: 2002, end: 2008
  4. ATACAND [Suspect]
     Indication: HYPERTENSION
     Dosage: 4 MG, 1X/DAY
     Route: 048
     Dates: start: 2008
  5. ASA [Concomitant]
     Indication: MYOCARDIAL INFARCTION
     Dosage: 200 MG, 1X/DAY  (2 DF DAILY)
     Route: 065
     Dates: start: 2002, end: 20130508

REACTIONS (5)
  - Coronary artery occlusion [Recovered/Resolved]
  - Chest pain [Unknown]
  - Hypotension [Recovered/Resolved]
  - Dizziness [Recovered/Resolved]
  - Off label use [Not Recovered/Not Resolved]
